FAERS Safety Report 7426036-4 (Version None)
Quarter: 2011Q2

REPORT INFORMATION
  Report Type: 
  Country: None (occurrence: None)
  Receive Date: 20110420
  Receipt Date: 20100123
  Transmission Date: 20111010
  Serious: No
  Sender: FDA-Public Use
  Company Number: US-BAYER-201012452NA

PATIENT
  Age: 25 Year
  Sex: Female

DRUGS (2)
  1. YAZ [Suspect]
     Dosage: UNK
     Dates: start: 20100122
  2. YAZ [Suspect]
     Indication: CONTRACEPTION

REACTIONS (2)
  - WEIGHT INCREASED [None]
  - MOOD ALTERED [None]
